FAERS Safety Report 24888198 (Version 1)
Quarter: 2025Q1

REPORT INFORMATION
  Report Type: Spontaneous
  Country: GB (occurrence: GB)
  Receive Date: 20250127
  Receipt Date: 20250127
  Transmission Date: 20250408
  Serious: Yes (Hospitalization, Disabling, Other)
  Sender: Unknown Manufacturer
  Company Number: GB-862174955-ML2025-00367

PATIENT
  Age: 46 Year
  Sex: Female

DRUGS (6)
  1. BACLOFEN [Suspect]
     Active Substance: BACLOFEN
     Indication: Intentional overdose
  2. AMOXICILLIN\CLAVULANIC ACID [Concomitant]
     Active Substance: AMOXICILLIN\CLAVULANIC ACID
     Indication: Aspiration
     Route: 042
  3. Doxcycline [Concomitant]
     Indication: Sputum culture positive
  4. SERTRALINE [Concomitant]
     Active Substance: SERTRALINE HYDROCHLORIDE
     Indication: Product used for unknown indication
  5. ROPINIROLE [Concomitant]
     Active Substance: ROPINIROLE
     Indication: Product used for unknown indication
  6. ESTRADIOL [Concomitant]
     Active Substance: ESTRADIOL
     Indication: Product used for unknown indication

REACTIONS (3)
  - Withdrawal syndrome [Recovered/Resolved]
  - Acute psychosis [Recovered/Resolved]
  - Intentional overdose [Unknown]
